FAERS Safety Report 14042383 (Version 2)
Quarter: 2017Q4

REPORT INFORMATION
  Report Type: Spontaneous
  Country: KR (occurrence: KR)
  Receive Date: 20171004
  Receipt Date: 20171020
  Transmission Date: 20180321
  Serious: Yes (Other)
  Sender: FDA-Public Use
  Company Number: KR-009507513-1710KOR000212

PATIENT
  Age: 22 Year
  Sex: Male

DRUGS (8)
  1. SYNATURA [Concomitant]
     Indication: PYREXIA
  2. ZOYLEX [Concomitant]
     Indication: ACUTE MYELOID LEUKAEMIA
     Dosage: 400 MG, BID
     Route: 048
     Dates: start: 20170525, end: 20170625
  3. SEPTRIN [Concomitant]
     Active Substance: SULFAMETHOXAZOLE\TRIMETHOPRIM
     Indication: ACUTE MYELOID LEUKAEMIA
     Dosage: 2 TABLET, QD
     Route: 048
     Dates: start: 20170526, end: 20170623
  4. SYNATURA [Concomitant]
     Indication: PROPHYLAXIS
     Dosage: 1 PACK, QD
     Route: 048
     Dates: start: 20170524, end: 20170605
  5. CRAVIT [Concomitant]
     Active Substance: LEVOFLOXACIN
     Indication: ACUTE MYELOID LEUKAEMIA
     Dosage: 1 VIAL, QD; STRENGTH: 750 MG/150 ML
     Route: 042
     Dates: start: 20170524, end: 20170531
  6. NOXAFIL [Suspect]
     Active Substance: POSACONAZOLE
     Indication: ANTIFUNGAL PROPHYLAXIS
     Dosage: 300 MG, QD
     Route: 048
     Dates: start: 20170530, end: 20170608
  7. TABAXIN [Concomitant]
     Active Substance: PIPERACILLIN SODIUM\TAZOBACTAM SODIUM
     Indication: ACUTE MYELOID LEUKAEMIA
     Dosage: 1 VIAL, QID
     Route: 042
     Dates: start: 20170524, end: 20170606
  8. NOXAFIL [Suspect]
     Active Substance: POSACONAZOLE
     Dosage: 300 MG, BID
     Route: 048
     Dates: start: 20170529, end: 20170529

REACTIONS (2)
  - Dyspepsia [Recovered/Resolved]
  - Febrile neutropenia [Recovered/Resolved]

NARRATIVE: CASE EVENT DATE: 20170605
